FAERS Safety Report 9468430 (Version 1)
Quarter: 2013Q3

REPORT INFORMATION
  Report Type: Spontaneous
  Country: US (occurrence: US)
  Receive Date: 20130821
  Receipt Date: 20130821
  Transmission Date: 20140515
  Serious: No
  Sender: FDA-Public Use
  Company Number: US-PFIZER INC-2013238612

PATIENT
  Age: 78 Year
  Sex: Male
  Weight: 92.97 kg

DRUGS (3)
  1. VIAGRA [Suspect]
     Indication: ERECTILE DYSFUNCTION
     Dosage: 50 MG, AS NEEDED
     Route: 048
     Dates: start: 20130808
  2. BABY ASPIRIN [Concomitant]
     Indication: ANTICOAGULANT THERAPY
     Dosage: 81 MG, UNK
  3. CENTRUM SILVER [Concomitant]
     Dosage: UNK, 1X/DAY

REACTIONS (1)
  - Abdominal pain upper [Recovered/Resolved]
